FAERS Safety Report 4836403-0 (Version None)
Quarter: 2005Q4

REPORT INFORMATION
  Report Type: 
  Country: None (occurrence: None)
  Receive Date: 20051123
  Receipt Date: 20041121
  Transmission Date: 20060501
  Serious: Yes (Other)
  Sender: FDA-Public Use
  Company Number: PHBS2004ES15714

PATIENT
  Age: 53 Year
  Sex: Male

DRUGS (6)
  1. AREDIA [Suspect]
     Indication: MULTIPLE MYELOMA
     Route: 042
  2. ZOMETA [Suspect]
     Indication: MULTIPLE MYELOMA
     Route: 042
  3. FLUOROURACIL [Concomitant]
     Route: 065
  4. ADRIAMYCIN PFS [Concomitant]
     Route: 065
  5. CYCLOPHOSPHAMIDE [Concomitant]
     Route: 065
  6. DEXAMETASON [Concomitant]
     Route: 065

REACTIONS (5)
  - BONE DISORDER [None]
  - OSTEOMYELITIS CHRONIC [None]
  - OSTEONECROSIS [None]
  - PAIN IN JAW [None]
  - TOOTH EXTRACTION [None]
